FAERS Safety Report 5387451-6 (Version None)
Quarter: 2007Q3

REPORT INFORMATION
  Report Type: 
  Country: None (occurrence: None)
  Receive Date: 20070711
  Receipt Date: 20070711
  Transmission Date: 20080115
  Serious: Yes (Life-Threatening, Hospitalization)
  Sender: FDA-Public Use
  Company Number: None

PATIENT
  Age: 60 Year
  Sex: Female
  Weight: 72.5755 kg

DRUGS (10)
  1. RITUXIMAB (RITUXIMAB) CONC FOR SOLUTION FOR INFUS [Suspect]
     Indication: MULTIPLE SCLEROSIS
     Dosage: 1000 MG INFUSION IV
     Route: 042
     Dates: start: 20061206
  2. RITUXIMAB (RITUXIMAB) CONC FOR SOLUTION FOR INFUS [Suspect]
     Indication: MULTIPLE SCLEROSIS
     Dosage: 1000 MG INFUSION IV
     Route: 042
     Dates: start: 20061220
  3. ASPIRIN [Concomitant]
  4. VIT B 12 [Concomitant]
  5. ESTROGEN [Concomitant]
  6. PLAVIX [Concomitant]
  7. COREG [Concomitant]
  8. LIPITOR [Concomitant]
  9. LISINOPRIL [Concomitant]
  10. ASPIRIN [Concomitant]

REACTIONS (4)
  - ACUTE MYOCARDIAL INFARCTION [None]
  - AORTIC DILATATION [None]
  - CORONARY ARTERY OCCLUSION [None]
  - ISCHAEMIC CARDIOMYOPATHY [None]
